FAERS Safety Report 8219953-9 (Version None)
Quarter: 2012Q1

REPORT INFORMATION
  Report Type: 
  Country: None (occurrence: None)
  Receive Date: 20120319
  Receipt Date: 20120314
  Transmission Date: 20120608
  Serious: Yes (Hospitalization, Other)
  Sender: FDA-Public Use
  Company Number: US-ROCHE-1024438

PATIENT
  Sex: Male

DRUGS (4)
  1. PEGINTERFERON ALFA-2A [Suspect]
     Indication: HEPATITIS C
     Route: 058
     Dates: start: 20111129
  2. COPEGUS [Suspect]
     Indication: HEPATITIS C
     Dosage: 1200 MG DAILY IN DIVIDED DOSES.
     Route: 048
     Dates: start: 20111129
  3. COPEGUS [Suspect]
     Dosage: DIVIDED DOSES
  4. TELAPREVIR [Suspect]
     Indication: HEPATITIS C
     Dates: start: 20111129

REACTIONS (6)
  - APPENDICECTOMY [None]
  - MYOCARDIAL INFARCTION [None]
  - RASH [None]
  - INSOMNIA [None]
  - DIZZINESS [None]
  - DRY SKIN [None]
